FAERS Safety Report 9247893 (Version 1)
Quarter: 2013Q2

REPORT INFORMATION
  Report Type: Spontaneous
  Country: US (occurrence: US)
  Receive Date: 20130423
  Receipt Date: 20130423
  Transmission Date: 20140414
  Serious: No
  Sender: FDA-Public Use
  Company Number: US-MYLANLABS-2012S1006821

PATIENT
  Age: 69 Year
  Sex: Male

DRUGS (6)
  1. IPRATROPIUM BROMIDE AND ALBUTEROL SULFATE INHALATION SOLUTION [Suspect]
     Indication: CHRONIC OBSTRUCTIVE PULMONARY DISEASE
     Route: 055
     Dates: start: 20120319, end: 20120319
  2. IPRATROPIUM BROMIDE AND ALBUTEROL SULFATE INHALATION SOLUTION [Suspect]
     Indication: EMPHYSEMA
     Route: 055
     Dates: start: 20120319, end: 20120319
  3. PLAVIX [Concomitant]
  4. HYPERTENSION MEDICATION [Concomitant]
  5. ANTIBIOTIC /00011701/ [Concomitant]
  6. STEROIDS [Concomitant]

REACTIONS (2)
  - Palpitations [Recovered/Resolved]
  - Dyspepsia [Recovered/Resolved]
